FAERS Safety Report 6814504-5 (Version None)
Quarter: 2010Q3

REPORT INFORMATION
  Report Type: 
  Country: None (occurrence: None)
  Receive Date: 20100702
  Receipt Date: 20090616
  Transmission Date: 20110219
  Serious: No
  Sender: FDA-Public Use
  Company Number: US-BRISTOL-MYERS SQUIBB COMPANY-14666093

PATIENT
  Age: 71 Year
  Sex: Female
  Weight: 61 kg

DRUGS (5)
  1. ABILIFY [Suspect]
     Indication: DEPRESSION
     Dates: start: 20090501
  2. CYMBALTA [Concomitant]
  3. CALCIUM CARBONATE [Concomitant]
  4. FOSAMAX [Concomitant]
  5. ASPIRIN [Concomitant]

REACTIONS (1)
  - THROAT TIGHTNESS [None]
